FAERS Safety Report 4617412-3 (Version None)
Quarter: 2005Q1

REPORT INFORMATION
  Report Type: 
  Country: None (occurrence: None)
  Receive Date: 20050324
  Receipt Date: 20050311
  Transmission Date: 20050727
  Serious: Yes (Other)
  Sender: FDA-Public Use
  Company Number: DK-JNJFOC-20050303495

PATIENT
  Age: 65 Year
  Sex: Female

DRUGS (4)
  1. REMICADE [Suspect]
     Indication: ARTHRITIS
     Route: 042
  2. IMUREL [Concomitant]
     Indication: ARTHRITIS
     Dosage: 1-2 DOSES PER DAY
     Route: 049
  3. BRUFEN [Concomitant]
     Indication: ARTHRITIS
     Dosage: 1-3 DOSES DAILY, STARTED PRIOR TO 2004
     Route: 049
  4. ALPRAZOLAM [Concomitant]
     Dosage: INITIATED BEFORE 2004.
     Route: 049

REACTIONS (1)
  - MYELODYSPLASTIC SYNDROME [None]
